FAERS Safety Report 10509449 (Version 3)
Quarter: 2014Q4

REPORT INFORMATION
  Report Type: Report from Study
  Country: US (occurrence: US)
  Receive Date: 20141009
  Receipt Date: 20141203
  Transmission Date: 20150528
  Serious: Yes (Hospitalization, Other)
  Sender: FDA-Public Use
  Company Number: US-ARIAD-2014US003400

PATIENT

DRUGS (3)
  1. PONATINIB [Suspect]
     Active Substance: PONATINIB
     Indication: CHRONIC MYELOID LEUKAEMIA
     Dosage: 45 MG, QD
     Route: 048
     Dates: start: 20130410
  2. PONATINIB [Suspect]
     Active Substance: PONATINIB
     Dosage: 45 MG, QD
     Route: 048
     Dates: start: 20130502, end: 20140525
  3. SPRYCEL [Suspect]
     Active Substance: DASATINIB
     Indication: CHRONIC MYELOID LEUKAEMIA
     Dosage: 100 MG, QD
     Dates: start: 20120419, end: 20130301

REACTIONS (12)
  - Presyncope [Recovered/Resolved]
  - Pleural effusion [Unknown]
  - Electrocardiogram QT prolonged [Unknown]
  - Chest pain [Recovered/Resolved]
  - Anaemia postoperative [Unknown]
  - Atrial flutter [Recovered/Resolved]
  - Dyspnoea [Recovered/Resolved]
  - Pleural effusion [Recovered/Resolved]
  - Sinus tachycardia [Unknown]
  - Delirium [Recovered/Resolved]
  - Urine output decreased [Recovered/Resolved]
  - Pleuritic pain [Recovered/Resolved]

NARRATIVE: CASE EVENT DATE: 2014
